FAERS Safety Report 21582784 (Version 1)
Quarter: 2022Q4

REPORT INFORMATION
  Report Type: Report from Study
  Country: US (occurrence: US)
  Receive Date: 20221111
  Receipt Date: 20221111
  Transmission Date: 20230112
  Serious: No
  Sender: FDA-Public Use
  Company Number: US-ABBVIE-4168383

PATIENT

DRUGS (5)
  1. SKYRIZI [Suspect]
     Active Substance: RISANKIZUMAB-RZAA
     Indication: Psoriasis
     Route: 058
  2. Pfizer/BioNtech covid 19 vaccine [Concomitant]
     Indication: COVID-19 immunisation
     Dosage: 2ND DOSE
     Dates: start: 20210410, end: 20210410
  3. Pfizer/BioNtech covid 19 vaccine [Concomitant]
     Indication: COVID-19 immunisation
     Dosage: 2ND BOOSTER
     Dates: start: 20220620, end: 20220620
  4. Pfizer/BioNtech covid 19 vaccine [Concomitant]
     Indication: COVID-19 immunisation
     Dosage: 1ST DOSE
     Dates: start: 20210320, end: 20210320
  5. Pfizer/BioNtech covid 19 vaccine [Concomitant]
     Indication: COVID-19 immunisation
     Dosage: 3RD DOSE
     Dates: start: 20211105, end: 20211105

REACTIONS (1)
  - Drug ineffective [Unknown]
